FAERS Safety Report 7797405-8 (Version None)
Quarter: 2011Q4

REPORT INFORMATION
  Report Type: 
  Country: None (occurrence: None)
  Receive Date: 20111005
  Receipt Date: 20110928
  Transmission Date: 20120403
  Serious: Yes (Other)
  Sender: FDA-Public Use
  Company Number: DE-ALLERGAN-1112602US

PATIENT
  Sex: Female

DRUGS (1)
  1. OZURDEX [Suspect]
     Indication: INTERMEDIATE UVEITIS
     Dosage: UNK
     Route: 031

REACTIONS (2)
  - DEVICE DISLOCATION [None]
  - CORNEAL DECOMPENSATION [None]
